FAERS Safety Report 9399101 (Version 2)
Quarter: 2013Q3

REPORT INFORMATION
  Report Type: Spontaneous
  Country: BR (occurrence: BR)
  Receive Date: 20130715
  Receipt Date: 20130726
  Transmission Date: 20140515
  Serious: Yes (Other)
  Sender: FDA-Public Use
  Company Number: BR-AMGEN-BRASP2013048843

PATIENT
  Age: 58 Year
  Sex: Male
  Weight: 84.8 kg

DRUGS (9)
  1. ENBREL [Suspect]
     Indication: ANKYLOSING SPONDYLITIS
     Dosage: 50 MG, 1X/WEEK
     Route: 065
     Dates: end: 201301
  2. RAMIPRIL [Concomitant]
     Indication: CARDIAC DISORDER
     Dosage: UNK
  3. CORDAREX                           /00133102/ [Concomitant]
     Indication: CARDIAC DISORDER
     Dosage: UNK
  4. SELOKEN                            /00376902/ [Concomitant]
     Indication: CARDIAC DISORDER
     Dosage: UNK
  5. PRAVACOL [Concomitant]
     Indication: CARDIAC DISORDER
     Dosage: UNK
  6. AAS [Concomitant]
     Indication: CARDIAC DISORDER
     Dosage: UNK
  7. ASPIRINA PREVENT [Concomitant]
     Indication: CARDIAC DISORDER
     Dosage: UNK
  8. SUSTRATE [Concomitant]
     Indication: CARDIAC DISORDER
     Dosage: UNK
  9. ZETIA [Concomitant]
     Indication: CARDIAC DISORDER
     Dosage: UNK

REACTIONS (7)
  - Cardiac disorder [Unknown]
  - Wrong technique in drug usage process [Unknown]
  - Needle issue [Unknown]
  - Fear [Unknown]
  - Neck pain [Recovered/Resolved]
  - Arthralgia [Recovered/Resolved]
  - Injection site pain [Recovered/Resolved]
